FAERS Safety Report 12692916 (Version 1)
Quarter: 2016Q3

REPORT INFORMATION
  Report Type: Spontaneous
  Country: US (occurrence: None)
  Receive Date: 20160826
  Receipt Date: 20160826
  Transmission Date: 20161109
  Serious: Yes (Life-Threatening, Hospitalization)
  Sender: FDA-Public Use
  Company Number: None

PATIENT
  Age: 81 Year
  Sex: Female
  Weight: 99.79 kg

DRUGS (15)
  1. ASPIRIN. [Concomitant]
     Active Substance: ASPIRIN
  2. OXYBUTIN [Concomitant]
     Active Substance: OXYBUTYNIN
  3. LASIX [Concomitant]
     Active Substance: FUROSEMIDE
  4. CHOLESTYRAMINE. [Concomitant]
     Active Substance: CHOLESTYRAMINE
  5. SYNTHROID [Concomitant]
     Active Substance: LEVOTHYROXINE SODIUM
  6. LISINOPRIL. [Concomitant]
     Active Substance: LISINOPRIL
  7. METOLAZONE. [Concomitant]
     Active Substance: METOLAZONE
  8. GLIMEPIRIDE. [Concomitant]
     Active Substance: GLIMEPIRIDE
  9. PRAVASTATIN. [Concomitant]
     Active Substance: PRAVASTATIN
  10. PRADAXA [Suspect]
     Active Substance: DABIGATRAN ETEXILATE MESYLATE
     Indication: ATRIAL FIBRILLATION
     Route: 048
     Dates: start: 20160207, end: 20160225
  11. ALLOPURINOL. [Concomitant]
     Active Substance: ALLOPURINOL
  12. VITAMIN D3 [Concomitant]
     Active Substance: CHOLECALCIFEROL
  13. GABAPENTIN. [Concomitant]
     Active Substance: GABAPENTIN
  14. METOPROLOL TARTRATE (LOPRESSOR) [Concomitant]
  15. POTASSIUM CHLORIDE. [Concomitant]
     Active Substance: POTASSIUM CHLORIDE

REACTIONS (5)
  - Acute kidney injury [None]
  - Coagulopathy [None]
  - Gastrointestinal haemorrhage [None]
  - Shock haemorrhagic [None]
  - Haemoglobin decreased [None]

NARRATIVE: CASE EVENT DATE: 20160225
